FAERS Safety Report 15733918 (Version 1)
Quarter: 2018Q4

REPORT INFORMATION
  Report Type: Spontaneous
  Country: US (occurrence: US)
  Receive Date: 20181218
  Receipt Date: 20181218
  Transmission Date: 20190205
  Serious: No
  Sender: FDA-Public Use
  Company Number: US-PFIZER INC-2018516866

PATIENT
  Age: 16 Year
  Sex: Male

DRUGS (2)
  1. GENOTROPIN [Suspect]
     Active Substance: SOMATROPIN
     Dosage: 3.8 MG, ALTERNATE DAY (7 DAYS A WEEK)
     Dates: start: 20140612
  2. GENOTROPIN [Suspect]
     Active Substance: SOMATROPIN
     Dosage: 4 MG, ALTERNATE DAY (7 DAYS A WEEK)
     Dates: start: 20140612

REACTIONS (2)
  - Pain in extremity [Unknown]
  - Visual impairment [Unknown]
